FAERS Safety Report 23190541 (Version 1)
Quarter: 2023Q4

REPORT INFORMATION
  Report Type: Spontaneous
  Country: US (occurrence: US)
  Receive Date: 20231116
  Receipt Date: 20231116
  Transmission Date: 20240110
  Serious: No
  Sender: FDA-Public Use
  Company Number: US-PADAGIS-2023PAD01623

PATIENT

DRUGS (9)
  1. HYDROCORTISONE [Suspect]
     Active Substance: HYDROCORTISONE
     Indication: Herpes gestationis
     Dosage: UNK
     Route: 061
  2. TRIAMCINOLONE ACETONIDE [Suspect]
     Active Substance: TRIAMCINOLONE ACETONIDE
     Indication: Herpes gestationis
     Dosage: UNK
     Route: 061
  3. CETIRIZINE HYDROCHLORIDE [Suspect]
     Active Substance: CETIRIZINE HYDROCHLORIDE
     Indication: Herpes gestationis
     Dosage: UNK
     Route: 048
  4. CLOBETASOL PROPIONATE [Suspect]
     Active Substance: CLOBETASOL PROPIONATE
     Indication: Herpes gestationis
     Dosage: UNK
     Route: 061
  5. DIPHENHYDRAMINE [Suspect]
     Active Substance: DIPHENHYDRAMINE
     Indication: Herpes gestationis
     Dosage: UNK
     Route: 061
  6. PREDNISONE [Suspect]
     Active Substance: PREDNISONE
     Indication: Herpes gestationis
     Dosage: 40 MG, QD (PRIOR PREGNANCY)
     Route: 048
  7. PREDNISONE [Suspect]
     Active Substance: PREDNISONE
     Dosage: 40 MG, QD (DURING 2ND PREGNANCY)
     Route: 048
  8. DUPILUMAB [Suspect]
     Active Substance: DUPILUMAB
     Indication: Herpes gestationis
     Dosage: 600 MG
     Route: 065
  9. DUPILUMAB [Suspect]
     Active Substance: DUPILUMAB
     Dosage: 300 MG, EVERY 2 WEEKS
     Route: 065

REACTIONS (3)
  - Drug ineffective [Unknown]
  - Maternal exposure during pregnancy [Unknown]
  - Product use in unapproved indication [Unknown]
